FAERS Safety Report 8238155-3 (Version None)
Quarter: 2012Q1

REPORT INFORMATION
  Report Type: 
  Country: None (occurrence: None)
  Receive Date: 20120327
  Receipt Date: 20120313
  Transmission Date: 20120608
  Serious: Yes (Other)
  Sender: FDA-Public Use
  Company Number: US-MYLANLABS-2012S1005803

PATIENT
  Age: 45 Year
  Sex: Male

DRUGS (5)
  1. DEXAMETHASONE [Concomitant]
     Dosage: 4 MG/DAY
     Route: 065
  2. TEMOZOLOMIDE [Concomitant]
     Indication: GLIOMA
     Dosage: 75 MG/M2
     Route: 065
  3. KEPPRA [Suspect]
     Dosage: 3000 MG/DAY
     Route: 065
  4. LEVETIRACETAM [Suspect]
     Route: 065
  5. LEVETIRACETAM [Suspect]
     Dosage: 3000 MG/DAY
     Route: 065

REACTIONS (1)
  - TUBULOINTERSTITIAL NEPHRITIS [None]
